FAERS Safety Report 4319789-5 (Version None)
Quarter: 2004Q1

REPORT INFORMATION
  Report Type: 
  Country: None (occurrence: None)
  Receive Date: 20040316
  Receipt Date: 20040212
  Transmission Date: 20041129
  Serious: Yes (Other)
  Sender: FDA-Public Use
  Company Number: KII-2001-0007295

PATIENT
  Sex: Female

DRUGS (1)
  1. MS CONTIN [Suspect]
     Indication: PAIN
     Dosage: 400 MG, Q12H

REACTIONS (2)
  - DRUG DEPENDENCE [None]
  - LUNG NEOPLASM MALIGNANT [None]
